FAERS Safety Report 4522636-X (Version None)
Quarter: 2004Q4

REPORT INFORMATION
  Report Type: 
  Country: None (occurrence: None)
  Receive Date: 20041207
  Receipt Date: 20041119
  Transmission Date: 20050328
  Serious: Yes (Other)
  Sender: FDA-Public Use
  Company Number: GBS041115991

PATIENT
  Age: 76 Year
  Sex: Male

DRUGS (1)
  1. XIGRIS [Suspect]

REACTIONS (1)
  - THROMBOCYTOPENIA [None]
